FAERS Safety Report 18105471 (Version 1)
Quarter: 2020Q3

REPORT INFORMATION
  Report Type: Report from Study
  Country: None (occurrence: US)
  Receive Date: 20200804
  Receipt Date: 20200804
  Transmission Date: 20201103
  Serious: Yes (Other)
  Sender: FDA-Public Use
  Company Number: US-ABBVIE-20K-163-3472022-00

PATIENT
  Sex: Female

DRUGS (1)
  1. RINVOQ [Suspect]
     Active Substance: UPADACITINIB
     Indication: RHEUMATOID ARTHRITIS
     Dosage: PER PACKAGE INSTRUCTIONS
     Route: 048

REACTIONS (5)
  - Laryngeal disorder [Unknown]
  - Therapeutic product effect incomplete [Unknown]
  - Oral candidiasis [Not Recovered/Not Resolved]
  - Thyroid disorder [Unknown]
  - Oropharyngeal pain [Unknown]

NARRATIVE: CASE EVENT DATE: 2020
